FAERS Safety Report 7399922-1 (Version None)
Quarter: 2011Q2

REPORT INFORMATION
  Report Type: 
  Country: None (occurrence: None)
  Receive Date: 20110407
  Receipt Date: 20110324
  Transmission Date: 20111010
  Serious: Yes (Other)
  Sender: FDA-Public Use
  Company Number: US-JNJFOC-20110310430

PATIENT
  Sex: Female
  Weight: 65.32 kg

DRUGS (3)
  1. COREG [Concomitant]
  2. REMICADE [Suspect]
     Indication: CROHN'S DISEASE
     Route: 042
  3. DIOVAN [Concomitant]

REACTIONS (1)
  - HERPES SIMPLEX OPHTHALMIC [None]
